FAERS Safety Report 6686543-9 (Version None)
Quarter: 2010Q2

REPORT INFORMATION
  Report Type: 
  Country: None (occurrence: None)
  Receive Date: 20100419
  Receipt Date: 20100414
  Transmission Date: 20101027
  Serious: Yes (Hospitalization)
  Sender: FDA-Public Use
  Company Number: FR-ROCHE-697048

PATIENT
  Sex: Male

DRUGS (2)
  1. ROCEPHIN [Suspect]
     Indication: ESCHERICHIA URINARY TRACT INFECTION
     Route: 042
     Dates: start: 20100223, end: 20100304
  2. DETICENE [Suspect]
     Indication: CHEMOTHERAPY
     Route: 042
     Dates: start: 20100211, end: 20100213

REACTIONS (1)
  - PANCYTOPENIA [None]
